FAERS Safety Report 22610334 (Version 3)
Quarter: 2023Q2

REPORT INFORMATION
  Report Type: Spontaneous
  Country: RU (occurrence: RU)
  Receive Date: 20230616
  Receipt Date: 20230629
  Transmission Date: 20230721
  Serious: Yes (Other)
  Sender: FDA-Public Use
  Company Number: RU-002147023-NVSC2023RU136996

PATIENT
  Sex: Male

DRUGS (6)
  1. MONTELUKAST [Suspect]
     Active Substance: MONTELUKAST SODIUM
     Indication: Asthma
     Dosage: 10 MG, QD
     Route: 048
  2. MOMETASONE [Suspect]
     Active Substance: MOMETASONE
     Indication: Asthma
     Dosage: 50 UG, BID (2 SPRAY DOSES IN EACH NASAL PASSAGE TWICE A DAY)
  3. FORMOTEROL [Suspect]
     Active Substance: FORMOTEROL
     Indication: Asthma
     Dosage: 12 UG, BID (1 INHALATION TWICE A DAY)
     Dates: start: 2019
  4. FORMOTEROL [Suspect]
     Active Substance: FORMOTEROL
     Dosage: 4.5 UG, BID (1 INHALATION TWICE A DAY)
  5. BUDESONIDE [Suspect]
     Active Substance: BUDESONIDE
     Indication: Asthma
     Dosage: 400 UG, BID (1 INHALATION TWICE A DAY)
     Dates: start: 2019
  6. BUDESONIDE [Suspect]
     Active Substance: BUDESONIDE
     Dosage: 160 UG, BID (1 INHALATION TWICE A DAY)

REACTIONS (4)
  - Asthma [Unknown]
  - Condition aggravated [Unknown]
  - Inappropriate schedule of product administration [Unknown]
  - Product use in unapproved indication [Unknown]

NARRATIVE: CASE EVENT DATE: 20211101
